FAERS Safety Report 4870995-0 (Version None)
Quarter: 2005Q4

REPORT INFORMATION
  Report Type: 
  Country: None (occurrence: None)
  Receive Date: 20051115
  Receipt Date: 20050721
  Transmission Date: 20060501
  Serious: Yes (Other)
  Sender: FDA-Public Use
  Company Number: 406193

PATIENT
  Age: 36 Year
  Sex: Male
  Weight: 93 kg

DRUGS (5)
  1. PEGASYS [Suspect]
     Indication: HEPATITIS C VIRUS
     Dosage: 180 MCG 1 PER WEEK SUBCUTANEOUS
     Route: 058
     Dates: start: 20050115
  2. RIBASPHERE [Suspect]
     Indication: HEPATITIS C VIRUS
     Dosage: 600 MG 2 PER DAY ORAL
     Route: 048
     Dates: start: 20050115
  3. WELLBUTRIN [Concomitant]
  4. XANAX [Concomitant]
  5. SEROQUEL [Concomitant]

REACTIONS (11)
  - DECREASED APPETITE [None]
  - DEPRESSION [None]
  - ERYTHEMA [None]
  - FATIGUE [None]
  - HAEMOGLOBIN DECREASED [None]
  - IRRITABILITY [None]
  - MOOD SWINGS [None]
  - PRURITUS [None]
  - RASH [None]
  - WEIGHT DECREASED [None]
  - WHITE BLOOD CELL COUNT DECREASED [None]
